FAERS Safety Report 8761366 (Version 1)
Quarter: 2012Q4

REPORT INFORMATION
  Report Type: 
  Country: US (occurrence: US)
  Receive Date: 20120829
  Receipt Date: 20120829
  Transmission Date: 20130627
  Serious: Yes (Other)
  Sender: FDA-Public Use
  Company Number: US-PFIZER INC-2012207297

PATIENT
  Age: 78 Year
  Sex: Female

DRUGS (2)
  1. TAPAZOLE [Suspect]
     Indication: BASEDOW^S DISEASE
     Dosage: UNK
  2. PROPRANOLOL [Concomitant]
     Indication: TACHYCARDIA
     Dosage: UNK

REACTIONS (1)
  - Drug resistance [Unknown]
